FAERS Safety Report 10718197 (Version 1)
Quarter: 2015Q1

REPORT INFORMATION
  Report Type: Report from Study
  Country: GR (occurrence: GR)
  Receive Date: 20150118
  Receipt Date: 20150118
  Transmission Date: 20150721
  Serious: Yes (Hospitalization, Other)
  Sender: FDA-Public Use
  Company Number: GR-BRISTOL-MYERS SQUIBB COMPANY-20089090

PATIENT
  Age: 66 Year
  Sex: Female
  Weight: 91 kg

DRUGS (34)
  1. LEVETIRACETAM. [Concomitant]
     Active Substance: LEVETIRACETAM
  2. PARACETAMOL [Concomitant]
     Active Substance: ACETAMINOPHEN
  3. PARAFFIN [Concomitant]
     Active Substance: PARAFFIN
  4. METRONIDAZOLE. [Concomitant]
     Active Substance: METRONIDAZOLE
  5. ONDANSETRON [Concomitant]
     Active Substance: ONDANSETRON
     Dates: start: 20140207, end: 20140209
  6. BROMAZEPAM [Concomitant]
     Active Substance: BROMAZEPAM
  7. BUDESONIDE. [Concomitant]
     Active Substance: BUDESONIDE
  8. NIFUROXIME. [Concomitant]
     Active Substance: NIFUROXIME
  9. CALCIUM GLUCONATE. [Concomitant]
     Active Substance: CALCIUM GLUCONATE
     Dosage: AMP 5 %
  10. PLACEBO [Suspect]
     Active Substance: UNSPECIFIED INGREDIENT
     Indication: METASTATIC MALIGNANT MELANOMA
     Dosage: UNK
     Route: 042
     Dates: start: 20140117, end: 20140117
  11. DEXAMETHASONE. [Concomitant]
     Active Substance: DEXAMETHASONE
     Dates: start: 20140214, end: 20140220
  12. METOPROLOL TARTRATE. [Concomitant]
     Active Substance: METOPROLOL TARTRATE
  13. RANITIDINE HCL [Concomitant]
     Active Substance: RANITIDINE HYDROCHLORIDE
  14. OMEPRAZOLE. [Concomitant]
     Active Substance: OMEPRAZOLE
  15. POTASSIUM CHLORIDE. [Concomitant]
     Active Substance: POTASSIUM CHLORIDE
  16. RANITIDINE [Concomitant]
     Active Substance: RANITIDINE\RANITIDINE HYDROCHLORIDE
     Dates: start: 20140207, end: 20140209
  17. NIVOLUMAB [Suspect]
     Active Substance: NIVOLUMAB
     Indication: METASTATIC MALIGNANT MELANOMA
     Dosage: UNK UNK, Q2WK
     Route: 042
     Dates: start: 20140117, end: 20140117
  18. DEXAMETHASONE. [Concomitant]
     Active Substance: DEXAMETHASONE
     Dates: start: 20140207, end: 20140207
  19. ACETYLSALICYLIC ACID [Concomitant]
     Active Substance: ASPIRIN
  20. METOCLOPRAMIDE. [Concomitant]
     Active Substance: METOCLOPRAMIDE
  21. RINGERS SOLUTION, LACTATED [Concomitant]
  22. DEXAMETHASONE. [Concomitant]
     Active Substance: DEXAMETHASONE
     Dates: start: 20140123, end: 20140131
  23. PANTOPRAZOLE [Concomitant]
     Active Substance: PANTOPRAZOLE SODIUM
  24. ALBUMIN HUMAN [Concomitant]
     Active Substance: ALBUMIN (HUMAN)
  25. PIPERACILLIN + TAZOBACTAM SODIUM [Concomitant]
  26. ENOXAPARIN [Concomitant]
     Active Substance: ENOXAPARIN
  27. SODIUM CHLORIDE. [Concomitant]
     Active Substance: SODIUM CHLORIDE
  28. VANCOMYCIN HCL [Concomitant]
     Active Substance: VANCOMYCIN HYDROCHLORIDE
  29. DIMETINDENE [Concomitant]
     Dates: start: 20140207, end: 20140207
  30. AMIODARONE [Concomitant]
     Active Substance: AMIODARONE
  31. PIPERACILLIN [Concomitant]
     Active Substance: PIPERACILLIN
  32. DEXTROSE 5% [Concomitant]
     Active Substance: DEXTROSE
  33. CEFOXITIN [Concomitant]
     Active Substance: CEFOXITIN\CEFOXITIN SODIUM
  34. FUROSEMIDE. [Concomitant]
     Active Substance: FUROSEMIDE

REACTIONS (3)
  - Lung infection [Recovered/Resolved]
  - Atrial fibrillation [Recovered/Resolved]
  - Skin infection [Unknown]

NARRATIVE: CASE EVENT DATE: 20140123
